FAERS Safety Report 5908086-X (Version None)
Quarter: 2008Q4

REPORT INFORMATION
  Report Type: 
  Country: None (occurrence: None)
  Receive Date: 20081003
  Receipt Date: 20080922
  Transmission Date: 20090506
  Serious: Yes (Other)
  Sender: FDA-Public Use
  Company Number: US-PFIZER INC-2008080252

PATIENT
  Sex: Female
  Weight: 81.6 kg

DRUGS (7)
  1. LYRICA [Suspect]
     Indication: INTERVERTEBRAL DISC PROTRUSION
     Dates: start: 20080915, end: 20080920
  2. ANASTROZOLE [Concomitant]
  3. PRILOSEC [Concomitant]
  4. BUPROPION HCL [Concomitant]
  5. CELEBREX [Concomitant]
  6. SYNTHROID [Concomitant]
  7. XANAX [Concomitant]

REACTIONS (4)
  - LIP BLISTER [None]
  - OEDEMA MOUTH [None]
  - OROPHARYNGEAL PAIN [None]
  - STOMATITIS [None]
